FAERS Safety Report 25593890 (Version 1)
Quarter: 2025Q3

REPORT INFORMATION
  Report Type: Spontaneous
  Country: US (occurrence: US)
  Receive Date: 20250723
  Receipt Date: 20250723
  Transmission Date: 20251020
  Serious: Yes (Other)
  Sender: ALEXION PHARMACEUTICALS
  Company Number: US-AstraZeneca-CH-00913762A

PATIENT
  Age: 84 Year
  Sex: Male

DRUGS (2)
  1. CALQUENCE [Suspect]
     Active Substance: ACALABRUTINIB
     Indication: Chronic lymphocytic leukaemia
     Dosage: 100 MILLIGRAM, BID
     Route: 065
     Dates: start: 202411, end: 20250501
  2. CALQUENCE [Suspect]
     Active Substance: ACALABRUTINIB
     Dosage: 100 MILLIGRAM, QD
     Route: 065
     Dates: start: 20250501

REACTIONS (9)
  - Lymphadenopathy [Recovered/Resolved]
  - Skin discolouration [Unknown]
  - Contusion [Unknown]
  - Peripheral swelling [Unknown]
  - Hormone level abnormal [Unknown]
  - Bursitis [Unknown]
  - Fluid retention [Unknown]
  - Gout [Unknown]
  - Thrombocytopenia [Unknown]

NARRATIVE: CASE EVENT DATE: 20241201
